FAERS Safety Report 15883655 (Version 2)
Quarter: 2019Q1

REPORT INFORMATION
  Report Type: Spontaneous
  Country: US (occurrence: US)
  Receive Date: 20190129
  Receipt Date: 20190319
  Transmission Date: 20190417
  Serious: Yes (Other)
  Sender: FDA-Public Use
  Company Number: US-DRREDDYS-USA/USA/19/0107185

PATIENT
  Age: 34 Year
  Sex: Female

DRUGS (2)
  1. TACROLIMUS. [Suspect]
     Active Substance: TACROLIMUS
     Dosage: TARGET TROUGH LEVELS WERE INCREASED TO 10.0 TO 12.0 NG/ML
     Dates: start: 2016
  2. TACROLIMUS. [Suspect]
     Active Substance: TACROLIMUS
     Indication: IMMUNOSUPPRESSION
     Dates: start: 201610

REACTIONS (1)
  - Hyperkalaemia [Recovering/Resolving]

NARRATIVE: CASE EVENT DATE: 2017
